FAERS Safety Report 16904370 (Version 1)
Quarter: 2019Q4

REPORT INFORMATION
  Report Type: Spontaneous
  Country: US (occurrence: US)
  Receive Date: 20190819
  Receipt Date: 20190819
  Transmission Date: 20200122
  Serious: No
  Sender: FDA-Public Use
  Company Number: None

PATIENT
  Sex: Female

DRUGS (1)
  1. NEUPOGEN [Suspect]
     Active Substance: FILGRASTIM
     Indication: DIFFUSE LARGE B-CELL LYMPHOMA
     Route: 058
     Dates: start: 20190725

REACTIONS (6)
  - Chest pain [None]
  - Constipation [None]
  - Pain in jaw [None]
  - Alopecia [None]
  - Hypoaesthesia [None]
  - Peripheral coldness [None]
